FAERS Safety Report 8397642-8 (Version None)
Quarter: 2012Q2

REPORT INFORMATION
  Report Type: 
  Country: None (occurrence: None)
  Receive Date: 20120531
  Receipt Date: 20120523
  Transmission Date: 20120825
  Serious: No
  Sender: FDA-Public Use
  Company Number: US-PFIZER INC-2012083153

PATIENT
  Sex: Male

DRUGS (4)
  1. PROTONIX [Suspect]
     Indication: DYSPEPSIA
     Dosage: 40 MG, UNK
  2. PROTONIX [Suspect]
     Dosage: 40 MG, UNK
  3. PANTOPRAZOLE [Suspect]
     Indication: DYSPEPSIA
     Dosage: UNK
  4. PANTOPRAZOLE [Suspect]
     Dosage: UNK

REACTIONS (1)
  - DRUG EFFECT DECREASED [None]
